FAERS Safety Report 6377608-X (Version None)
Quarter: 2009Q3

REPORT INFORMATION
  Report Type: 
  Country: None (occurrence: None)
  Receive Date: 20090925
  Receipt Date: 20090917
  Transmission Date: 20100115
  Serious: Yes (Hospitalization)
  Sender: FDA-Public Use
  Company Number: FR-TEVA-192508ISR

PATIENT
  Sex: Male

DRUGS (4)
  1. FLUOROURACIL [Suspect]
     Indication: COLORECTAL CANCER
     Dates: end: 20080630
  2. IRINOTECAN HCL [Suspect]
     Indication: COLORECTAL CANCER
     Dates: end: 20080630
  3. FOLINIC ACID [Suspect]
     Indication: COLORECTAL CANCER
     Dates: end: 20080630
  4. BEVACIZUMAB [Suspect]
     Indication: COLORECTAL CANCER

REACTIONS (1)
  - PULMONARY EMBOLISM [None]
